FAERS Safety Report 16715115 (Version 8)
Quarter: 2021Q3

REPORT INFORMATION
  Report Type: Spontaneous
  Country: US (occurrence: US)
  Receive Date: 20190819
  Receipt Date: 20210802
  Transmission Date: 20211014
  Serious: Yes (Hospitalization, Other)
  Sender: FDA-Public Use
  Company Number: US-PFIZER INC-2018161259

PATIENT
  Age: 74 Year
  Sex: Female
  Weight: 75 kg

DRUGS (14)
  1. LYRICA [Suspect]
     Active Substance: PREGABALIN
     Indication: NEURALGIA
     Dosage: 200 MG, 1 CAPSULE NIGHTLY
     Route: 048
  2. BI EST [Concomitant]
     Active Substance: ESTRADIOL\ESTRIOL
     Indication: HORMONE LEVEL ABNORMAL
     Dosage: 1 GTT, 1X/DAY (1 DROP)
     Route: 060
     Dates: start: 1995, end: 201907
  3. LYRICA [Suspect]
     Active Substance: PREGABALIN
     Dosage: 200 MG, 1 CAPSULE NIGHTLY
     Route: 048
     Dates: start: 20190814
  4. KETOCONAZOLE. [Concomitant]
     Active Substance: KETOCONAZOLE
     Indication: RASH
     Dosage: UNK, 1X/DAY
     Dates: end: 201904
  5. LYRICA [Suspect]
     Active Substance: PREGABALIN
     Dosage: 250 MG (1 CAPSULE OF 200 MG, 1 CAPSULE OF 50 MG), NIGHTLY
  6. LYRICA [Suspect]
     Active Substance: PREGABALIN
     Indication: FIBROMYALGIA
     Dosage: 200 MG
     Dates: start: 2000
  7. PROZAC [Concomitant]
     Active Substance: FLUOXETINE HYDROCHLORIDE
     Indication: DEPRESSION
     Dosage: 30 MG, 1X/DAY
     Route: 048
     Dates: start: 1990
  8. FLEXERIL [Concomitant]
     Active Substance: CYCLOBENZAPRINE HYDROCHLORIDE
     Indication: MUSCLE RELEASE
     Dosage: 30 MG, 3X/DAY (THREE TABLETS, THREE TIMES A DAY)
     Route: 048
     Dates: start: 1990
  9. LYRICA [Suspect]
     Active Substance: PREGABALIN
     Dosage: 300 MG, 1 CAPSULE NIGHTLY
     Route: 048
  10. LYRICA [Suspect]
     Active Substance: PREGABALIN
     Dosage: 50 MG, 1 CAPSULE EVERY MORNING
     Route: 048
  11. HYDROCORTISONE. [Concomitant]
     Active Substance: HYDROCORTISONE
     Indication: RASH
     Dosage: UNK, 3X/DAY
     Route: 061
     Dates: start: 2000, end: 201904
  12. MOMETASONE [Concomitant]
     Active Substance: MOMETASONE
     Indication: RASH
     Dosage: UNK, 1X/DAY, AT ONCE A DAY, 3 TIMES A WEEK
     Route: 061
     Dates: start: 2000, end: 2018
  13. HYDROCHLOROTHIAZIDE. [Concomitant]
     Active Substance: HYDROCHLOROTHIAZIDE
     Indication: HYPERTENSION
     Dosage: 25 MG, 1X/DAY
     Route: 048
     Dates: start: 1990
  14. PROGESTERONE. [Concomitant]
     Active Substance: PROGESTERONE
     Indication: HORMONE LEVEL ABNORMAL
     Dosage: 50 MG, 1X/DAY
     Route: 060
     Dates: start: 1995, end: 201903

REACTIONS (2)
  - Tremor [Unknown]
  - Intervertebral disc disorder [Unknown]
